FAERS Safety Report 4770936-0 (Version None)
Quarter: 2005Q3

REPORT INFORMATION
  Report Type: 
  Country: None (occurrence: None)
  Receive Date: 20050915
  Receipt Date: 20050908
  Transmission Date: 20060218
  Serious: Yes (Hospitalization)
  Sender: FDA-Public Use
  Company Number: GB-BRISTOL-MYERS SQUIBB COMPANY-13103098

PATIENT
  Age: 66 Year
  Sex: Female
  Weight: 60 kg

DRUGS (7)
  1. CISPLATIN [Suspect]
     Indication: SMALL CELL LUNG CANCER STAGE UNSPECIFIED
     Route: 042
     Dates: start: 20050720
  2. ETOPOSIDE [Suspect]
     Indication: SMALL CELL LUNG CANCER STAGE UNSPECIFIED
     Route: 042
     Dates: start: 20050720
  3. ASPIRIN [Concomitant]
     Route: 048
  4. SIMVASTATIN [Concomitant]
     Indication: HYPERCHOLESTEROLAEMIA
     Route: 048
  5. THIORIDAZINE [Concomitant]
     Indication: PSYCHOTIC DISORDER
     Route: 048
  6. MS CONTIN [Concomitant]
     Indication: PAIN
     Route: 048
  7. SANDO-K [Concomitant]
     Indication: HYPOKALAEMIA
     Route: 048
     Dates: start: 20050801, end: 20050808

REACTIONS (4)
  - HYPONATRAEMIA [None]
  - MALAISE [None]
  - NEUTROPENIC SEPSIS [None]
  - PYREXIA [None]
